FAERS Safety Report 9456168 (Version 1)
Quarter: 2013Q3

REPORT INFORMATION
  Report Type: Spontaneous
  Country: GB (occurrence: None)
  Receive Date: 20130808
  Receipt Date: 20130808
  Transmission Date: 20140515
  Serious: Yes (Life-Threatening, Hospitalization, Other)
  Sender: FDA-Public Use
  Company Number: COL_14103_2013

PATIENT
  Age: 77 Year
  Sex: Male
  Weight: 78 kg

DRUGS (8)
  1. CHLORHEXIDINE [Suspect]
     Indication: PREOPERATIVE CARE
     Dosage: 2%/NI/ TOPICAL
     Route: 061
  2. BEZAFIBRATE [Concomitant]
  3. CLOPIDOGREL [Concomitant]
  4. COD LIVER OIL [Concomitant]
  5. FERROUS FUMARATE [Concomitant]
  6. LANSOPRAZOLE [Concomitant]
  7. SODIUM PHOSPHATE [Concomitant]
  8. TEMAZEPAM [Concomitant]

REACTIONS (2)
  - Anaphylactic reaction [None]
  - Hypotension [None]
